FAERS Safety Report 4462355-1 (Version None)
Quarter: 2004Q3

REPORT INFORMATION
  Report Type: 
  Country: None (occurrence: None)
  Receive Date: 20040924
  Receipt Date: 20040914
  Transmission Date: 20050211
  Serious: Yes (Disabling)
  Sender: FDA-Public Use
  Company Number: 200331097BWH

PATIENT
  Age: 79 Year
  Sex: Female
  Weight: 56.246 kg

DRUGS (3)
  1. AVELOX [Suspect]
     Indication: BRONCHITIS
     Dosage: 400 MG, QD, ORAL
     Route: 048
     Dates: start: 20031125, end: 20031129
  2. ADVIL [Concomitant]
  3. LOTENSIN [Concomitant]

REACTIONS (3)
  - ANOSMIA [None]
  - MARKEDLY REDUCED DIETARY INTAKE [None]
  - WEIGHT DECREASED [None]
